FAERS Safety Report 11111689 (Version 1)
Quarter: 2015Q2

REPORT INFORMATION
  Report Type: Spontaneous
  Country: US (occurrence: US)
  Receive Date: 20150514
  Receipt Date: 20150514
  Transmission Date: 20150821
  Serious: Yes (Hospitalization)
  Sender: FDA-Public Use
  Company Number: US-AUROBINDO-AUR-APL-2015-04244

PATIENT
  Age: 82 Year
  Sex: Male
  Weight: 70 kg

DRUGS (9)
  1. RIVAROXABAN [Suspect]
     Active Substance: RIVAROXABAN
     Indication: ATRIAL FIBRILLATION
     Dosage: 15 MG, UNK
     Route: 048
     Dates: start: 20140617
  2. TRAMADOL 50MG [Suspect]
     Active Substance: TRAMADOL
     Indication: ARTHRALGIA
     Dosage: 50 MG, AS NECESSARY
     Route: 048
     Dates: start: 20140311
  3. LIDOCAINE. [Suspect]
     Active Substance: LIDOCAINE
     Indication: ARTHRALGIA
     Dosage: 5 %, UNK
     Route: 061
     Dates: start: 20140311
  4. TAFAMIDIS MEGLUMINE [Suspect]
     Active Substance: TAFAMIDIS MEGLUMINE
     Indication: CARDIOMYOPATHY
     Dosage: UNK, ONCE A DAY
     Route: 048
     Dates: start: 20141229
  5. ATORVASTATIN [Suspect]
     Active Substance: ATORVASTATIN
     Indication: HYPERTENSION
     Dosage: 20 MG, DAILY
     Route: 048
     Dates: start: 20130108
  6. POTASSIUM CHLORIDE. [Suspect]
     Active Substance: POTASSIUM CHLORIDE
     Indication: GENERAL PHYSICAL CONDITION
     Dosage: 40 MG, DAILY
     Route: 048
     Dates: start: 20130131
  7. HYDROCHLOROTHIAZIDE 12.5 MG, HERITAGE PHARMACY [Suspect]
     Active Substance: HYDROCHLOROTHIAZIDE
     Indication: HYPERTENSION
     Dosage: 12.5 MG, DAILY
     Route: 048
     Dates: start: 20141229, end: 20150417
  8. LOSARTAN 25MG [Suspect]
     Active Substance: LOSARTAN
     Indication: HYPERTENSION
     Dosage: 25 MG, DAILY
     Route: 048
     Dates: start: 20141229
  9. TORASEMIDE 20MG [Suspect]
     Active Substance: TORSEMIDE
     Indication: CARDIAC FAILURE
     Dosage: 20 MG, DAILY
     Route: 048
     Dates: start: 20140812

REACTIONS (6)
  - Condition aggravated [Recovered/Resolved]
  - Troponin I increased [Recovered/Resolved]
  - Blood creatine phosphokinase MB [Recovered/Resolved]
  - Cardiac failure [Recovered/Resolved]
  - N-terminal prohormone brain natriuretic peptide increased [Recovered/Resolved]
  - Cardiac failure congestive [Recovered/Resolved]

NARRATIVE: CASE EVENT DATE: 20150417
